FAERS Safety Report 4355454-6 (Version None)
Quarter: 2004Q2

REPORT INFORMATION
  Report Type: 
  Country: None (occurrence: None)
  Receive Date: 20040505
  Receipt Date: 20040419
  Transmission Date: 20050107
  Serious: Yes (Death)
  Sender: FDA-Public Use
  Company Number: 2003AP03600

PATIENT
  Age: 75 Year
  Sex: Male

DRUGS (10)
  1. IRESSA [Suspect]
     Indication: LUNG ADENOCARCINOMA
     Dosage: 250 MG DAILY; PO
     Route: 048
     Dates: start: 20030923, end: 20031005
  2. IRESSA [Suspect]
     Indication: NON-SMALL CELL LUNG CANCER
     Dosage: 250 MG DAILY; PO
     Route: 048
     Dates: start: 20030923, end: 20031005
  3. BIOFERMIN [Concomitant]
  4. MVI 3 [Concomitant]
  5. HUMULIN [Concomitant]
  6. LASIX [Concomitant]
  7. MS CONTIN [Concomitant]
  8. PARAPLATIN [Concomitant]
  9. DOCETAXEL [Concomitant]
  10. AMINOTRIPA 1 [Suspect]
     Dosage: 1700 ML DAILY IVD
     Route: 041
     Dates: start: 20030617, end: 20031007

REACTIONS (5)
  - BRONCHOPNEUMONIA [None]
  - HEPATIC FUNCTION ABNORMAL [None]
  - INTERSTITIAL LUNG DISEASE [None]
  - PLEURAL EFFUSION [None]
  - RESPIRATORY FAILURE [None]
